FAERS Safety Report 5254666-7 (Version None)
Quarter: 2007Q1

REPORT INFORMATION
  Report Type: 
  Country: None (occurrence: None)
  Receive Date: 20070302
  Receipt Date: 20070220
  Transmission Date: 20070707
  Serious: Yes (Other)
  Sender: FDA-Public Use
  Company Number: US-PFIZER INC-2007015298

PATIENT
  Sex: Female
  Weight: 67.6 kg

DRUGS (2)
  1. LYRICA [Suspect]
     Indication: NEURITIS
     Dates: start: 20061201, end: 20070218
  2. PLAQUENIL [Concomitant]

REACTIONS (1)
  - HEPATIC ENZYME INCREASED [None]
